FAERS Safety Report 16088409 (Version 3)
Quarter: 2025Q3

REPORT INFORMATION
  Report Type: Spontaneous
  Country: EU (occurrence: EU)
  Receive Date: 20190319
  Receipt Date: 20250716
  Transmission Date: 20251021
  Serious: Yes (Death, Hospitalization, Other)
  Sender: AUROBINDO
  Company Number: EU-AUROBINDO-AUR-APL-2019-013458

PATIENT
  Age: 73 Year
  Sex: Male

DRUGS (2)
  1. METHOTREXATE [Suspect]
     Active Substance: METHOTREXATE
     Indication: Immunosuppressant drug therapy
     Route: 065
     Dates: end: 2012
  2. PREDNISONE [Suspect]
     Active Substance: PREDNISONE
     Indication: Immunosuppressant drug therapy
     Route: 065
     Dates: end: 2012

REACTIONS (13)
  - Meningitis listeria [Fatal]
  - Listeriosis [Fatal]
  - Septic shock [Fatal]
  - CNS ventriculitis [Fatal]
  - Cardiopulmonary failure [Fatal]
  - Oedema [Fatal]
  - Meningitis [Fatal]
  - Ventricular hypertrophy [Fatal]
  - Pulmonary congestion [Fatal]
  - Pleural adhesion [Fatal]
  - Non-small cell lung cancer metastatic [Fatal]
  - Musculoskeletal stiffness [Unknown]
  - Eye pain [Unknown]

NARRATIVE: CASE EVENT DATE: 20120101
